FAERS Safety Report 23696844 (Version 1)
Quarter: 2024Q2

REPORT INFORMATION
  Report Type: Spontaneous
  Country: US (occurrence: US)
  Receive Date: 20240402
  Receipt Date: 20240402
  Transmission Date: 20240716
  Serious: No
  Sender: FDA-Public Use
  Company Number: US-CPL-003664

PATIENT
  Sex: Male

DRUGS (1)
  1. RIVASTIGMINE [Suspect]
     Active Substance: RIVASTIGMINE
     Indication: Product used for unknown indication
     Dosage: APPRO. 1-2 MG RECENTLY BUT PATIENT WAS TAKING 4.5MG BID, APPRO. 3 WEEKS AGO

REACTIONS (1)
  - Diarrhoea [Unknown]
